FAERS Safety Report 12206082 (Version 1)
Quarter: 2016Q1

REPORT INFORMATION
  Report Type: Spontaneous
  Country: PL (occurrence: PL)
  Receive Date: 20160324
  Receipt Date: 20160324
  Transmission Date: 20160526
  Serious: Yes (Hospitalization, Other)
  Sender: FDA-Public Use
  Company Number: PL-KADMON PHARMACEUTICALS, LLC-KAD201603-001114

PATIENT
  Age: 64 Year
  Sex: Female

DRUGS (3)
  1. EXVIERA [Suspect]
     Active Substance: DASABUVIR
     Indication: HEPATITIS C
     Dosage: TABLET
     Route: 048
     Dates: start: 20151102, end: 20160113
  2. RIBAVIRIN. [Suspect]
     Active Substance: RIBAVIRIN
     Indication: HEPATITIS C
     Dosage: TABLET
     Route: 048
     Dates: start: 20151102, end: 20160113
  3. VIEKIRAX [Suspect]
     Active Substance: OMBITASVIR\PARITAPREVIR\RITONAVIR
     Indication: HEPATITIS C
     Dosage: TABLET
     Route: 048
     Dates: start: 20151102, end: 20160113

REACTIONS (12)
  - Ascites [Recovering/Resolving]
  - Malaise [Unknown]
  - Abdominal pain upper [Recovered/Resolved]
  - Asthenia [Unknown]
  - Somnolence [Recovered/Resolved]
  - Hepatic encephalopathy [Recovered/Resolved]
  - Hepatic failure [Recovered/Resolved]
  - Back pain [Recovered/Resolved]
  - Oedema peripheral [Recovered/Resolved]
  - Memory impairment [Recovered/Resolved]
  - Diarrhoea [Recovered/Resolved]
  - Confusional state [Recovered/Resolved]
